FAERS Safety Report 9851654 (Version 5)
Quarter: 2014Q2

REPORT INFORMATION
  Report Type: Spontaneous
  Country: US (occurrence: US)
  Receive Date: 20140129
  Receipt Date: 20140620
  Transmission Date: 20141212
  Serious: Yes (Life-Threatening, Hospitalization, Other)
  Sender: FDA-Public Use
  Company Number: US-ROCHE-1334949

PATIENT
  Sex: Female

DRUGS (8)
  1. CLONAZEPAM [Suspect]
     Indication: DEPRESSION
     Dosage: 1 IN THE MORNING
     Route: 048
     Dates: start: 200805
  2. CLONAZEPAM [Suspect]
     Indication: ANXIETY
  3. EFFEXOR [Suspect]
     Indication: DEPRESSION
     Route: 048
  4. LABETALOL [Concomitant]
     Indication: BLOOD PRESSURE
     Route: 048
  5. LEVOTHYROXINE [Concomitant]
     Route: 065
  6. BABY ASPIRIN [Concomitant]
     Dosage: 1 BY MOUTH
     Route: 048
  7. ALBUTEROL SULFATE [Concomitant]
     Route: 065
  8. IPRATROPIUM BROMIDE [Concomitant]
     Route: 065

REACTIONS (38)
  - Urinary retention [Unknown]
  - Pain [Unknown]
  - Blood pressure increased [Unknown]
  - Pancreatitis [Unknown]
  - Aneurysm [Unknown]
  - Pneumonia [Unknown]
  - Hypoaesthesia [Unknown]
  - Vision blurred [Unknown]
  - Cough [Unknown]
  - Dyspnoea [Unknown]
  - Hyperhidrosis [Unknown]
  - Insomnia [Unknown]
  - Depression [Not Recovered/Not Resolved]
  - Anxiety [Unknown]
  - Drug ineffective [Not Recovered/Not Resolved]
  - Blood glucose decreased [Unknown]
  - Hypothyroidism [Unknown]
  - Feeling abnormal [Unknown]
  - Post-traumatic stress disorder [Unknown]
  - Rhinorrhoea [Unknown]
  - Irritability [Not Recovered/Not Resolved]
  - Renal pain [Unknown]
  - Pleuritic pain [Unknown]
  - Nightmare [Unknown]
  - Back disorder [Unknown]
  - Malaise [Unknown]
  - Neuropathy peripheral [Unknown]
  - Gastric disorder [Unknown]
  - Schizophrenia [Unknown]
  - Aphagia [Unknown]
  - Mental impairment [Unknown]
  - Hypoaesthesia [Unknown]
  - Convulsion [Unknown]
  - Speech disorder [Unknown]
  - Crying [Unknown]
  - Diarrhoea [Unknown]
  - Nausea [Unknown]
  - Weight decreased [Unknown]
